FAERS Safety Report 18273057 (Version 1)
Quarter: 2020Q3

REPORT INFORMATION
  Report Type: Spontaneous
  Country: US (occurrence: US)
  Receive Date: 20200916
  Receipt Date: 20200916
  Transmission Date: 20201103
  Serious: Yes (Disabling)
  Sender: FDA-Public Use
  Company Number: None

PATIENT
  Age: 81 Year
  Sex: Female
  Weight: 49.9 kg

DRUGS (1)
  1. POVIDONE [Suspect]
     Active Substance: POVIDONE

REACTIONS (6)
  - Application site pain [None]
  - Cognitive disorder [None]
  - Abdominal distension [None]
  - Pain in extremity [None]
  - Sleep disorder [None]
  - Presyncope [None]

NARRATIVE: CASE EVENT DATE: 20140520
